FAERS Safety Report 6381081-5 (Version None)
Quarter: 2009Q3

REPORT INFORMATION
  Report Type: 
  Country: None (occurrence: None)
  Receive Date: 20090925
  Receipt Date: 20090925
  Transmission Date: 20100115
  Serious: Yes (Other)
  Sender: FDA-Public Use
  Company Number: None

PATIENT
  Sex: Female
  Weight: 36.2878 kg

DRUGS (1)
  1. SINGULAIR [Suspect]
     Indication: MULTIPLE ALLERGIES
     Dosage: 1 TABLET ONCE/NIGHT PO
     Route: 048
     Dates: start: 20090618, end: 20090916

REACTIONS (3)
  - SELF INJURIOUS BEHAVIOUR [None]
  - SLEEP TERROR [None]
  - SOMNAMBULISM [None]
